FAERS Safety Report 10729598 (Version 1)
Quarter: 2015Q1

REPORT INFORMATION
  Report Type: Spontaneous
  Country: US (occurrence: None)
  Receive Date: 20150121
  Receipt Date: 20150121
  Transmission Date: 20150721
  Serious: Yes (Hospitalization)
  Sender: FDA-Public Use
  Company Number: None

PATIENT
  Age: 61 Year
  Sex: Female
  Weight: 56.2 kg

DRUGS (12)
  1. CALCIUM/VITAMIN D3 [Concomitant]
  2. FOLIC ACID. [Concomitant]
     Active Substance: FOLIC ACID
  3. MYRBETRIQ [Concomitant]
     Active Substance: MIRABEGRON
  4. NASONEX [Concomitant]
     Active Substance: MOMETASONE FUROATE
  5. ZOCOR [Concomitant]
     Active Substance: SIMVASTATIN
  6. AMITRIPTYLINE [Concomitant]
     Active Substance: AMITRIPTYLINE
  7. MULTIVITAMIN [Concomitant]
     Active Substance: VITAMINS
  8. BEVACIZUMAB 10 MG/KG GENENTECH [Suspect]
     Active Substance: BEVACIZUMAB
     Indication: BLOOD BRAIN BARRIER DEFECT
     Dosage: 1 INFUSION ONCE INTRAVNEOUS
     Route: 042
     Dates: start: 20140211, end: 20140211
  9. VITAMIN D3 [Concomitant]
     Active Substance: CHOLECALCIFEROL
  10. CYANOCOBALMIN [Concomitant]
  11. CELLCEPT [Concomitant]
     Active Substance: MYCOPHENOLATE MOFETIL\MYCOPHENOLATE MOFETIL HYDROCHLORIDE
  12. BACTRIM [Concomitant]
     Active Substance: SULFAMETHOXAZOLE\TRIMETHOPRIM

REACTIONS (3)
  - Neurological symptom [None]
  - Urinary tract infection [None]
  - Condition aggravated [None]

NARRATIVE: CASE EVENT DATE: 20140328
